FAERS Safety Report 8849263 (Version 1)
Quarter: 2012Q4

REPORT INFORMATION
  Report Type: 
  Country: TR (occurrence: TR)
  Receive Date: 20121019
  Receipt Date: 20121019
  Transmission Date: 20130627
  Serious: Yes (Other)
  Sender: FDA-Public Use
  Company Number: TR-US-EMD SERONO, INC.-7167768

PATIENT
  Sex: Female

DRUGS (1)
  1. RECOMBINANT HUMAN FOLLICLE-STIMULATING HORMONE [Suspect]
     Indication: OVULATION INDUCTION

REACTIONS (1)
  - Cerebral venous thrombosis [Recovered/Resolved]
